FAERS Safety Report 24193502 (Version 1)
Quarter: 2024Q3

REPORT INFORMATION
  Report Type: Spontaneous
  Country: US (occurrence: None)
  Receive Date: 20240809
  Receipt Date: 20240809
  Transmission Date: 20241017
  Serious: No
  Sender: Alvotech
  Company Number: US-ALVOTECHPMS-2024-ALVOTECHPMS-002029

PATIENT
  Sex: Male

DRUGS (1)
  1. ADALIMUMAB-RYVK [Suspect]
     Active Substance: ADALIMUMAB-RYVK
     Indication: Crohn^s disease
     Dosage: 1 BOX
     Route: 058
     Dates: start: 20240707

REACTIONS (7)
  - Device malfunction [Unknown]
  - Abdominal pain [Not Recovered/Not Resolved]
  - Vomiting [Not Recovered/Not Resolved]
  - Diarrhoea [Not Recovered/Not Resolved]
  - Pyrexia [Not Recovered/Not Resolved]
  - Insurance issue [Recovered/Resolved]
  - Product delivery mechanism issue [Unknown]
